FAERS Safety Report 8968069 (Version 1)
Quarter: 2012Q4

REPORT INFORMATION
  Report Type: 
  Country: PT (occurrence: PT)
  Receive Date: 20121217
  Receipt Date: 20121217
  Transmission Date: 20130627
  Serious: Yes (Other)
  Sender: FDA-Public Use
  Company Number: PT-GILEAD-2012-0066292

PATIENT
  Age: 52 Year
  Sex: Male

DRUGS (4)
  1. ATRIPLA [Suspect]
     Indication: HIV INFECTION
     Dosage: UNK
     Dates: start: 201110
  2. TRUVADA [Suspect]
     Indication: HIV INFECTION
     Dosage: UNK
  3. ETRAVIRINE [Concomitant]
     Indication: HIV INFECTION
  4. DARUNAVIR [Concomitant]
     Indication: HIV INFECTION

REACTIONS (3)
  - Hallucination [Recovered/Resolved]
  - Panic attack [Recovered/Resolved]
  - Erectile dysfunction [Unknown]
